FAERS Safety Report 4347085-9 (Version None)
Quarter: 2004Q2

REPORT INFORMATION
  Report Type: 
  Country: None (occurrence: None)
  Receive Date: 20040426
  Receipt Date: 20040419
  Transmission Date: 20050107
  Serious: Yes (Hospitalization)
  Sender: FDA-Public Use
  Company Number: FR-GLAXOSMITHKLINE-B0330240A

PATIENT
  Age: 45 Year
  Sex: Female

DRUGS (3)
  1. AUGMENTIN [Suspect]
     Indication: CELLULITIS
     Route: 042
     Dates: start: 20040212, end: 20040302
  2. CLAVENTIN [Suspect]
     Indication: CELLULITIS
     Dosage: 4G FOUR TIMES PER DAY
     Route: 042
     Dates: start: 20040209, end: 20040212
  3. GENTALLINE [Suspect]
     Indication: CELLULITIS
     Dosage: 180MG PER DAY
     Route: 042
     Dates: start: 20040209, end: 20040215

REACTIONS (2)
  - ANAEMIA [None]
  - LEUKOPENIA [None]
